FAERS Safety Report 5105873-5 (Version None)
Quarter: 2006Q3

REPORT INFORMATION
  Report Type: 
  Country: None (occurrence: None)
  Receive Date: 20060915
  Receipt Date: 20060830
  Transmission Date: 20061208
  Serious: Yes (Other)
  Sender: FDA-Public Use
  Company Number: FR-GLAXOSMITHKLINE-B0437137A

PATIENT
  Sex: Female

DRUGS (4)
  1. DEROXAT [Suspect]
     Indication: DELUSIONAL DISORDER, PERSECUTORY TYPE
     Dosage: 20MG PER DAY
     Route: 048
     Dates: start: 20060501
  2. TERCIAN [Suspect]
     Indication: DELUSIONAL DISORDER, PERSECUTORY TYPE
     Route: 048
     Dates: start: 20060521
  3. THERALENE [Suspect]
     Indication: DELUSIONAL DISORDER, PERSECUTORY TYPE
     Route: 048
     Dates: start: 20060521, end: 20060701
  4. ZYPREXA [Concomitant]
     Indication: DELUSIONAL DISORDER, PERSECUTORY TYPE
     Route: 048
     Dates: start: 20060505

REACTIONS (3)
  - DRUG EXPOSURE DURING PREGNANCY [None]
  - PREMATURE LABOUR [None]
  - THREATENED LABOUR [None]
